FAERS Safety Report 5469982-3 (Version None)
Quarter: 2007Q3

REPORT INFORMATION
  Report Type: 
  Country: None (occurrence: None)
  Receive Date: 20070927
  Receipt Date: 20070918
  Transmission Date: 20080115
  Serious: Yes (Hospitalization)
  Sender: FDA-Public Use
  Company Number: US-PFIZER INC-2007067941

PATIENT
  Sex: Female

DRUGS (1)
  1. DETROL [Suspect]
     Indication: HYPERTONIC BLADDER

REACTIONS (3)
  - DRUG INEFFECTIVE [None]
  - NOCTURIA [None]
  - SURGERY [None]
